FAERS Safety Report 21668598 (Version 4)
Quarter: 2023Q1

REPORT INFORMATION
  Report Type: Spontaneous
  Country: US (occurrence: US)
  Receive Date: 20221201
  Receipt Date: 20230308
  Transmission Date: 20230418
  Serious: No
  Sender: FDA-Public Use
  Company Number: US-SA-SAC20221129000878

PATIENT
  Age: 41 Year
  Sex: Female

DRUGS (5)
  1. CAPRELSA [Suspect]
     Active Substance: VANDETANIB
     Indication: Thyroid cancer
     Dosage: 300 MG, QD
     Route: 048
     Dates: start: 20221102, end: 20221228
  2. CAPRELSA [Suspect]
     Active Substance: VANDETANIB
     Dosage: 200 MG, QD
     Route: 048
     Dates: start: 20221102
  3. CAPRELSA [Suspect]
     Active Substance: VANDETANIB
     Dosage: 100 MG, QD
     Route: 048
  4. AMLODIPINE [Concomitant]
     Active Substance: AMLODIPINE BESYLATE
     Indication: Hypertension
  5. MUCINEX [Concomitant]
     Active Substance: GUAIFENESIN
     Indication: Cough

REACTIONS (9)
  - Chest pain [Unknown]
  - Insomnia [Unknown]
  - Visual impairment [Unknown]
  - Diarrhoea [Unknown]
  - Acne [Unknown]
  - Rash [Unknown]
  - Hypersensitivity [Unknown]
  - Cough [Unknown]
  - Hypertension [Unknown]

NARRATIVE: CASE EVENT DATE: 20221101
